FAERS Safety Report 4864417-3 (Version None)
Quarter: 2005Q4

REPORT INFORMATION
  Report Type: 
  Country: None (occurrence: None)
  Receive Date: 20051221
  Receipt Date: 20051221
  Transmission Date: 20060501
  Serious: No
  Sender: FDA-Public Use
  Company Number: None

PATIENT
  Age: 49 Year
  Sex: Male
  Weight: 89.8122 kg

DRUGS (1)
  1. ATORVASTATIN [Suspect]
     Dosage: 10MG DAILY  PO
     Route: 048

REACTIONS (1)
  - POLYMYOSITIS [None]
